FAERS Safety Report 8365877-6 (Version None)
Quarter: 2012Q2

REPORT INFORMATION
  Report Type: 
  Country: None (occurrence: None)
  Receive Date: 20120515
  Receipt Date: 20120430
  Transmission Date: 20120825
  Serious: Yes (Other)
  Sender: FDA-Public Use
  Company Number: 1279592

PATIENT
  Sex: Male
  Weight: 0.54 kg

DRUGS (3)
  1. (PENTAVITE) [Concomitant]
  2. HEPARIN SODIUM [Suspect]
     Indication: ARTERIAL THROMBOSIS
     Dosage: 631 UNITS/KG/DAY, INTRAVENOUS (NOT OTHERWISE SPECIFIED)
     Route: 042
  3. (PHOSPHATE /01318702/) [Concomitant]

REACTIONS (4)
  - PATHOLOGICAL FRACTURE [None]
  - ULNA FRACTURE [None]
  - FIBULA FRACTURE [None]
  - HUMERUS FRACTURE [None]
